FAERS Safety Report 6386852-7 (Version None)
Quarter: 2009Q4

REPORT INFORMATION
  Report Type: 
  Country: None (occurrence: None)
  Receive Date: 20091002
  Receipt Date: 20090923
  Transmission Date: 20100525
  Serious: Yes (Hospitalization)
  Sender: FDA-Public Use
  Company Number: AR-NOVOPROD-281427

PATIENT
  Sex: Female
  Weight: 56.5 kg

DRUGS (3)
  1. LEVEMIR [Suspect]
     Indication: DIABETES MELLITUS
     Dosage: 46 IU, QD
     Route: 058
     Dates: start: 20071101
  2. NOVORAPID [Suspect]
     Indication: DIABETES MELLITUS
     Dosage: 12-16 IU
     Route: 058
  3. METILDOPA [Concomitant]
     Dosage: 1500 MG, UNK

REACTIONS (3)
  - HYPERTENSIVE CRISIS [None]
  - PREGNANCY [None]
  - PREMATURE SEPARATION OF PLACENTA [None]
